FAERS Safety Report 13396014 (Version 1)
Quarter: 2017Q2

REPORT INFORMATION
  Report Type: Spontaneous
  Country: JP (occurrence: JP)
  Receive Date: 20170403
  Receipt Date: 20170403
  Transmission Date: 20170830
  Serious: Yes (Hospitalization, Other)
  Sender: FDA-Public Use
  Company Number: JP-GLAXOSMITHKLINE-JP2017JPN033425

PATIENT
  Age: 75 Year
  Sex: Female
  Weight: 46 kg

DRUGS (7)
  1. METHYCOBAL [Concomitant]
     Active Substance: METHYLCOBALAMIN
     Dosage: 1500 ?G, 1D
  2. LAMICTAL [Suspect]
     Active Substance: LAMOTRIGINE
     Indication: BIPOLAR DISORDER
     Dosage: 25 MG, QOD
     Route: 048
     Dates: start: 20170112, end: 20170124
  3. LIMAPROST ALFADEX [Concomitant]
     Active Substance: LIMAPROST
     Dosage: 15 ?G, 1D
  4. ZYPREXA [Concomitant]
     Active Substance: OLANZAPINE
     Indication: BIPOLAR DISORDER
     Dosage: 10 MG, 1D
  5. SEROQUEL [Concomitant]
     Active Substance: QUETIAPINE FUMARATE
     Dosage: UNK
  6. DEPAKENE [Suspect]
     Active Substance: VALPROIC ACID
     Indication: BIPOLAR DISORDER
     Dosage: 400 MG, 1D
     Route: 048
  7. URSO [Concomitant]
     Active Substance: URSODIOL
     Dosage: 600 MG, 1D

REACTIONS (3)
  - Rash [Recovered/Resolved]
  - Pyrexia [Recovered/Resolved]
  - Cutaneous symptom [Recovering/Resolving]

NARRATIVE: CASE EVENT DATE: 20170124
